FAERS Safety Report 23381145 (Version 1)
Quarter: 2024Q1

REPORT INFORMATION
  Report Type: Other
  Country: GB (occurrence: GB)
  Receive Date: 20240109
  Receipt Date: 20240109
  Transmission Date: 20240410
  Serious: Yes (Hospitalization, Other)
  Sender: FDA-Public Use
  Company Number: GB-JNJFOC-20231279938

PATIENT

DRUGS (15)
  1. DEXAMETHASONE [Suspect]
     Active Substance: DEXAMETHASONE
     Indication: Primary amyloidosis
     Dosage: 20 MG
     Route: 048
     Dates: start: 20230524, end: 20231213
  2. CYCLOPHOSPHAMIDE [Suspect]
     Active Substance: CYCLOPHOSPHAMIDE
     Indication: Primary amyloidosis
     Dosage: 500 MG
     Route: 048
     Dates: start: 20230524, end: 20231213
  3. DARATUMUMAB [Suspect]
     Active Substance: DARATUMUMAB
     Indication: Primary amyloidosis
     Dosage: 15 ML
     Route: 058
     Dates: start: 20230524, end: 20231206
  4. VELCADE [Suspect]
     Active Substance: BORTEZOMIB
     Indication: Primary amyloidosis
     Dosage: 2.5 MG
     Route: 058
     Dates: start: 20230524, end: 20231213
  5. ACYCLOVIR [Concomitant]
     Active Substance: ACYCLOVIR
     Indication: Prophylaxis
     Dosage: 200 MG, 3 DOSE DAILY
     Route: 048
     Dates: start: 20231011
  6. AMIODARONE [Concomitant]
     Active Substance: AMIODARONE
     Indication: Arrhythmia prophylaxis
     Dosage: 200 MG, QD
     Route: 048
     Dates: start: 20230524
  7. AZITHROMYCIN [Concomitant]
     Active Substance: AZITHROMYCIN
     Indication: Prophylaxis
     Dosage: 250 MG
     Route: 048
     Dates: start: 20231121
  8. BUMETANIDE [Concomitant]
     Active Substance: BUMETANIDE
     Indication: Oedema peripheral
     Dosage: 1 MG, QD
     Route: 048
     Dates: start: 20230830
  9. DAPAGLIFLOZIN [Concomitant]
     Active Substance: DAPAGLIFLOZIN
     Indication: Cardiac failure
     Dosage: 5 MG, QD
     Route: 048
     Dates: start: 20230517
  10. DOMPERIDONE [Concomitant]
     Active Substance: DOMPERIDONE
     Indication: Nausea
     Dosage: 10 MG, PRN
     Route: 048
     Dates: start: 20231024
  11. MIDODRINE [Concomitant]
     Active Substance: MIDODRINE
     Indication: Prophylaxis
     Dosage: 2.5 MG, PRN
     Route: 048
     Dates: start: 20230517
  12. OMEPRAZOLE [Concomitant]
     Active Substance: OMEPRAZOLE
     Indication: Gastrooesophageal reflux disease
     Dosage: 10 MG, QD
     Route: 048
  13. ONDANSETRON [Concomitant]
     Active Substance: ONDANSETRON
     Indication: Prophylaxis of nausea and vomiting
     Dosage: 8 MG, 1 DOSE WEEKLY
     Route: 048
     Dates: start: 20230524
  14. SENNA [Concomitant]
     Active Substance: SENNA LEAF\SENNOSIDES\SENNOSIDES A AND B
     Indication: Constipation
     Dosage: 15 MG, 2 DOSE DAILY
     Route: 048
     Dates: start: 20230530
  15. SPIRONOLACTONE [Concomitant]
     Active Substance: SPIRONOLACTONE
     Indication: Oedema peripheral
     Dosage: 25 MG, 2 DOSE DAILY
     Route: 048
     Dates: start: 20230620

REACTIONS (2)
  - Off label use [Unknown]
  - Colitis [Not Recovered/Not Resolved]

NARRATIVE: CASE EVENT DATE: 20230524
